FAERS Safety Report 19264898 (Version 2)
Quarter: 2021Q2

REPORT INFORMATION
  Report Type: Spontaneous
  Country: GB (occurrence: GB)
  Receive Date: 20210517
  Receipt Date: 20210624
  Transmission Date: 20210717
  Serious: Yes (Other)
  Sender: FDA-Public Use
  Company Number: GB-MYLANLABS-2021M1027765

PATIENT
  Age: 40 Year
  Sex: Female

DRUGS (2)
  1. OMEPRAZOLE. [Suspect]
     Active Substance: OMEPRAZOLE
     Indication: GASTROOESOPHAGEAL REFLUX DISEASE
     Dosage: 200 MILLIGRAM
     Route: 048
     Dates: start: 2019, end: 2019
  2. LANSOPRAZOLE. [Suspect]
     Active Substance: LANSOPRAZOLE
     Indication: GASTROOESOPHAGEAL REFLUX DISEASE
     Dosage: UNK
     Route: 048
     Dates: start: 2019, end: 2019

REACTIONS (14)
  - Abdominal pain upper [Unknown]
  - Disturbance in attention [Unknown]
  - Pharyngeal swelling [Unknown]
  - Illness [Unknown]
  - Constipation [Unknown]
  - Palpitations [Recovered/Resolved]
  - Oropharyngeal discomfort [Unknown]
  - Malaise [Unknown]
  - Rebound acid hypersecretion [Unknown]
  - Dizziness [Recovered/Resolved]
  - Dry mouth [Unknown]
  - Gastrooesophageal reflux disease [Unknown]
  - Abdominal pain [Unknown]
  - Nausea [Unknown]

NARRATIVE: CASE EVENT DATE: 2019
